FAERS Safety Report 17006844 (Version 3)
Quarter: 2023Q1

REPORT INFORMATION
  Report Type: Report from Study
  Country: US (occurrence: US)
  Receive Date: 20191107
  Receipt Date: 20230109
  Transmission Date: 20230418
  Serious: Yes (Other)
  Sender: FDA-Public Use
  Company Number: US-JAZZ-2019-US-015246

PATIENT
  Sex: Female

DRUGS (9)
  1. XYREM [Suspect]
     Active Substance: SODIUM OXYBATE
     Indication: Narcolepsy
     Dosage: 2.25 GRAM, BID
     Route: 048
     Dates: start: 201404, end: 201408
  2. XYREM [Suspect]
     Active Substance: SODIUM OXYBATE
     Indication: Cataplexy
     Dosage: 3 GRAM, BID
     Route: 048
     Dates: start: 201408, end: 201708
  3. XYREM [Suspect]
     Active Substance: SODIUM OXYBATE
     Indication: Somnolence
     Dosage: 2.25 GRAM, BID
     Route: 048
     Dates: start: 201911
  4. VYVANSE [Suspect]
     Active Substance: LISDEXAMFETAMINE DIMESYLATE
     Indication: Product used for unknown indication
     Dosage: 1 CAPSULE IN MORNING ORALLY ONCE A DAY
     Dates: start: 20151124
  5. CLINDAMYCIN HYDROCHLORIDE [Concomitant]
     Active Substance: CLINDAMYCIN HYDROCHLORIDE
     Indication: Product used for unknown indication
     Dosage: UNK
     Dates: start: 20151210, end: 20160101
  6. NUVIGIL [Concomitant]
     Active Substance: ARMODAFINIL
     Indication: Product used for unknown indication
     Dosage: 1 TABLET ORALLY ONCE DAILY
     Dates: start: 20151124
  7. MODAFINIL [Concomitant]
     Active Substance: MODAFINIL
     Indication: Product used for unknown indication
     Dosage: UNK
     Dates: end: 201910
  8. ALCOHOL [Concomitant]
     Active Substance: ALCOHOL
     Dosage: UNK
     Dates: start: 20151209
  9. RITALIN [Concomitant]
     Active Substance: METHYLPHENIDATE HYDROCHLORIDE
     Indication: Product used for unknown indication
     Dosage: TAKE ONE TABLET EMPTY STOMACH ORALLY TWICE A DAY

REACTIONS (6)
  - Surgery [Unknown]
  - Tic [Recovered/Resolved]
  - Depression [Unknown]
  - Anxiety [Unknown]
  - Weight increased [Unknown]
  - Product administration interrupted [Unknown]
